FAERS Safety Report 10914735 (Version 1)
Quarter: 2015Q1

REPORT INFORMATION
  Report Type: Spontaneous
  Country: DE (occurrence: DE)
  Receive Date: 20150313
  Receipt Date: 20150313
  Transmission Date: 20150721
  Serious: Yes (Other)
  Sender: FDA-Public Use
  Company Number: PHHY2015DE030512

PATIENT
  Age: 80 Year
  Sex: Female

DRUGS (2)
  1. ACETYLSALICYLIC ACID [Suspect]
     Active Substance: ASPIRIN
     Indication: THROMBOSIS PROPHYLAXIS
     Dosage: 100 MG, UNK
     Route: 065
  2. ENOXAPARIN [Suspect]
     Active Substance: ENOXAPARIN
     Indication: THROMBOSIS PROPHYLAXIS
     Dosage: 40 MG, QD
     Route: 065

REACTIONS (8)
  - Visual field defect [Unknown]
  - Optic atrophy [Unknown]
  - Vision blurred [Unknown]
  - Haematoma [Unknown]
  - Visual impairment [Not Recovered/Not Resolved]
  - Pain [Unknown]
  - Eye haemorrhage [Not Recovered/Not Resolved]
  - Visual acuity reduced [Unknown]
